FAERS Safety Report 12689658 (Version 1)
Quarter: 2016Q3

REPORT INFORMATION
  Report Type: Spontaneous
  Country: US (occurrence: None)
  Receive Date: 20160825
  Receipt Date: 20160825
  Transmission Date: 20161109
  Serious: No
  Sender: FDA-Public Use
  Company Number: None

PATIENT
  Sex: Male
  Weight: 81.65 kg

DRUGS (2)
  1. IMATINIB MESYLATE 400MG SUN PHARM [Suspect]
     Active Substance: IMATINIB MESYLATE
     Indication: PHILADELPHIA CHROMOSOME POSITIVE
     Route: 048
     Dates: start: 20140227
  2. IMATINIB MESYLATE 400MG SUN PHARM [Suspect]
     Active Substance: IMATINIB MESYLATE
     Indication: CHRONIC MYELOID LEUKAEMIA
     Route: 048
     Dates: start: 20140227

REACTIONS (4)
  - Eye swelling [None]
  - Peripheral swelling [None]
  - Contusion [None]
  - Joint swelling [None]
